FAERS Safety Report 9827100 (Version 2)
Quarter: 2014Q1

REPORT INFORMATION
  Report Type: Spontaneous
  Country: US (occurrence: US)
  Receive Date: 20131120
  Receipt Date: 20140318
  Transmission Date: 20141002
  Serious: Yes (Other)
  Sender: FDA-Public Use
  Company Number: US-JNJFOC-20130611072

PATIENT
  Age: 62 Year
  Sex: Female
  Weight: 83 kg

DRUGS (2)
  1. EVITHROM [Suspect]
     Indication: HAEMOSTASIS
     Dosage: 6 KITS
     Route: 061
     Dates: start: 20121012, end: 20121012
  2. LOCAL HAEMOSTATICS [Suspect]
     Indication: HAEMOSTASIS
     Route: 061
     Dates: start: 20121012, end: 20121012

REACTIONS (2)
  - Drug ineffective [Unknown]
  - Anaemia [Unknown]
